FAERS Safety Report 15695027 (Version 2)
Quarter: 2019Q1

REPORT INFORMATION
  Report Type: Spontaneous
  Country: US (occurrence: US)
  Receive Date: 20181206
  Receipt Date: 20190204
  Transmission Date: 20190417
  Serious: Yes (Other)
  Sender: FDA-Public Use
  Company Number: US-BAYER-2018-220269

PATIENT
  Age: 83 Year
  Sex: Female
  Weight: 58.05 kg

DRUGS (7)
  1. VITAMIN D [Concomitant]
     Active Substance: CHOLECALCIFEROL
  2. LORAZEPAM. [Concomitant]
     Active Substance: LORAZEPAM
  3. ELIQUIS [Concomitant]
     Active Substance: APIXABAN
  4. PAXIL [Concomitant]
     Active Substance: PAROXETINE HYDROCHLORIDE
  5. BAYER LOW DOSE [Suspect]
     Active Substance: ASPIRIN
     Indication: THROMBOSIS PROPHYLAXIS
     Dosage: 81 MG, QD
     Route: 048
     Dates: start: 2010, end: 20181128
  6. SIMVASTATIN. [Concomitant]
     Active Substance: SIMVASTATIN
  7. LOSARTAN. [Concomitant]
     Active Substance: LOSARTAN

REACTIONS (2)
  - Drug ineffective [Not Recovered/Not Resolved]
  - Thrombosis [Not Recovered/Not Resolved]

NARRATIVE: CASE EVENT DATE: 20181117
